FAERS Safety Report 10076977 (Version 1)
Quarter: 2014Q2

REPORT INFORMATION
  Report Type: Spontaneous
  Country: IT (occurrence: IT)
  Receive Date: 20140414
  Receipt Date: 20140414
  Transmission Date: 20141212
  Serious: Yes (Hospitalization)
  Sender: FDA-Public Use
  Company Number: IT-TEVA-472966ISR

PATIENT
  Age: 87 Year
  Sex: Female

DRUGS (3)
  1. LITHIUM [Suspect]
     Indication: BIPOLAR DISORDER
     Dosage: 450 MILLIGRAM DAILY;
     Route: 048
     Dates: start: 20080922, end: 20130922
  2. EUTIROX [Concomitant]
     Indication: PRODUCT USED FOR UNKNOWN INDICATION
     Route: 048
  3. RISPERDAL [Concomitant]
     Indication: PRODUCT USED FOR UNKNOWN INDICATION
     Route: 048

REACTIONS (3)
  - Bradycardia [Recovering/Resolving]
  - Gait disturbance [Recovering/Resolving]
  - Tremor [Recovering/Resolving]
